FAERS Safety Report 16773572 (Version 2)
Quarter: 2019Q4

REPORT INFORMATION
  Report Type: Spontaneous
  Country: FR (occurrence: FR)
  Receive Date: 20190904
  Receipt Date: 20191003
  Transmission Date: 20200122
  Serious: Yes (Life-Threatening)
  Sender: FDA-Public Use
  Company Number: FR-US-PROVELL PHARMACEUTICALS LLC-E2B_90069796

PATIENT
  Age: 85 Year
  Sex: Male
  Weight: 75 kg

DRUGS (11)
  1. MELATONINE [Suspect]
     Active Substance: MELATONIN
     Indication: POISONING DELIBERATE
     Dosage: AMOUNT INGESTED SUPPOSED:12 MG FOUR TIMES A DAY
     Route: 048
     Dates: start: 20190701, end: 20190701
  2. IMOVANE [Suspect]
     Active Substance: ZOPICLONE
     Indication: POISONING DELIBERATE
     Dosage: QUANTITY SUPPOSEDLY INGESTED: 7.5 MG FOUR TIMES A DAY
     Route: 048
     Dates: start: 20190701, end: 20190701
  3. LEVOTHYROX 125 [Suspect]
     Active Substance: LEVOTHYROXINE
     Indication: POISONING DELIBERATE
     Dosage: AMOUNT INGESTED SUPPOSED: 125 MICROGRAMS FOUR TIMES A DAY
     Route: 048
  4. BISOPROLOL [Suspect]
     Active Substance: BISOPROLOL
     Indication: POISONING DELIBERATE
     Dosage: AMOUNT QUANTITY SUPPOSEDLY INGESTED: 4 TABLETS OF 5 MG
     Route: 048
     Dates: start: 20190701, end: 20190701
  5. MIANSERINE HCL [Suspect]
     Active Substance: MIANSERIN HYDROCHLORIDE
     Indication: POISONING DELIBERATE
     Dosage: AMOUNT INGESTED SUPPOSED: 4 TABLETS OF 30 MG
     Route: 048
     Dates: start: 20190701, end: 20190701
  6. KARDEGIC [Suspect]
     Active Substance: ASPIRIN DL-LYSINE
     Indication: POISONING DELIBERATE
     Dosage: AMOUNT INGESTED SUPPOSED: 4 BAGS OF 75 MG
     Route: 048
     Dates: start: 20190701, end: 20190701
  7. INEXIUM                            /01479302/ [Suspect]
     Active Substance: ESOMEPRAZOLE MAGNESIUM
     Indication: POISONING DELIBERATE
     Dosage: PRESUMED QUANTITY INJESTED: 4 TABLETS OF 20 MG.
     Route: 048
     Dates: start: 20190701
  8. RAMIPRIL. [Suspect]
     Active Substance: RAMIPRIL
     Indication: POISONING DELIBERATE
     Route: 048
     Dates: start: 20190701, end: 20190701
  9. INSPRA [Suspect]
     Active Substance: EPLERENONE
     Indication: POISONING DELIBERATE
     Dosage: AMOUNT INGESTED SUPPOSED: 4 TABLETS
     Route: 048
     Dates: start: 20190701, end: 20190701
  10. TAHOR [Suspect]
     Active Substance: ATORVASTATIN CALCIUM
     Indication: POISONING DELIBERATE
     Route: 048
     Dates: start: 20190701, end: 20190701
  11. CORDARONE [Suspect]
     Active Substance: AMIODARONE HYDROCHLORIDE
     Indication: POISONING DELIBERATE
     Dosage: QUANTITY SUPPOSEDLY INGESTED: 4 CP OF 200 MG
     Route: 048
     Dates: start: 20190701, end: 20190701

REACTIONS (5)
  - Cardiogenic shock [Recovered/Resolved]
  - Hypoglycaemia [Recovered/Resolved]
  - Poisoning deliberate [Recovered/Resolved]
  - Bradycardia [Recovered/Resolved]
  - Overdose [Unknown]

NARRATIVE: CASE EVENT DATE: 20190701
